FAERS Safety Report 14687255 (Version 1)
Quarter: 2018Q1

REPORT INFORMATION
  Report Type: Report from Study
  Country: TR (occurrence: TR)
  Receive Date: 20180328
  Receipt Date: 20180328
  Transmission Date: 20180509
  Serious: Yes (Other)
  Sender: FDA-Public Use
  Company Number: TR-UCBSA-2018012570

PATIENT
  Age: 36 Year
  Sex: Female

DRUGS (1)
  1. CERTOLIZUMAB PEGOL [Suspect]
     Active Substance: CERTOLIZUMAB PEGOL
     Indication: CROHN^S DISEASE
     Dosage: 400 MG, UNK
     Route: 058
     Dates: start: 20180302

REACTIONS (5)
  - Abdominal distension [Unknown]
  - Asthenia [Unknown]
  - Dysuria [Unknown]
  - Rectal haemorrhage [Unknown]
  - Mass [Unknown]

NARRATIVE: CASE EVENT DATE: 201803
